FAERS Safety Report 10058315 (Version 2)
Quarter: 2014Q2

REPORT INFORMATION
  Report Type: Spontaneous
  Country: BR (occurrence: BR)
  Receive Date: 20140404
  Receipt Date: 20140423
  Transmission Date: 20141212
  Serious: Yes (Other)
  Sender: FDA-Public Use
  Company Number: BR-ELI_LILLY_AND_COMPANY-BR201403009345

PATIENT
  Age: 52 Year
  Sex: Female
  Weight: 72 kg

DRUGS (9)
  1. HUMULIN N [Suspect]
     Indication: DIABETES MELLITUS
     Dosage: 20 IU, EACH MORNING
     Route: 065
     Dates: start: 2010
  2. HUMULIN N [Suspect]
     Dosage: 10 IU, BID
     Route: 065
     Dates: start: 2010
  3. HUMULIN R [Suspect]
     Indication: DIABETES MELLITUS
     Dosage: 6 IU, BID
     Route: 065
     Dates: start: 2010
  4. ENALAPRIL [Concomitant]
     Indication: BLOOD PRESSURE
     Dosage: UNK, UNKNOWN
     Route: 065
  5. SIMVASTATIN [Concomitant]
     Indication: BLOOD CHOLESTEROL
     Dosage: UNK, UNKNOWN
     Route: 065
  6. AMITRIPTYLINE [Concomitant]
     Indication: DEPRESSION
     Dosage: UNK, UNKNOWN
     Route: 065
  7. OMEPRAZOLE [Concomitant]
     Indication: PRODUCT USED FOR UNKNOWN INDICATION
     Dosage: UNK, UNKNOWN
     Route: 065
  8. GLIFAGE [Concomitant]
     Indication: PRODUCT USED FOR UNKNOWN INDICATION
     Dosage: 500 MG, UNKNOWN
     Route: 065
  9. CALCIUM [Concomitant]
     Indication: OSTEOPOROSIS
     Dosage: UNK, UNKNOWN
     Route: 065

REACTIONS (6)
  - Osteoporosis [Not Recovered/Not Resolved]
  - Nervousness [Not Recovered/Not Resolved]
  - Visual impairment [Not Recovered/Not Resolved]
  - Injection site pain [Not Recovered/Not Resolved]
  - Fear [Not Recovered/Not Resolved]
  - Depression [Unknown]
